FAERS Safety Report 4600261-X (Version None)
Quarter: 2005Q1

REPORT INFORMATION
  Report Type: 
  Country: None (occurrence: None)
  Receive Date: 20050307
  Receipt Date: 20050214
  Transmission Date: 20050727
  Serious: Yes (Other)
  Sender: FDA-Public Use
  Company Number: FR-GLAXOSMITHKLINE-B0371360A

PATIENT
  Age: 54 Year
  Sex: Female

DRUGS (2)
  1. COMBIVIR [Suspect]
     Indication: EXPOSURE TO COMMUNICABLE DISEASE
     Route: 048
  2. KALETRA [Suspect]
     Indication: EXPOSURE TO COMMUNICABLE DISEASE
     Route: 048

REACTIONS (2)
  - CHOLECYSTITIS INFECTIVE [None]
  - CHOLELITHIASIS [None]
